FAERS Safety Report 5952326-8 (Version None)
Quarter: 2008Q4

REPORT INFORMATION
  Report Type: 
  Country: None (occurrence: None)
  Receive Date: 20081113
  Receipt Date: 20081105
  Transmission Date: 20090506
  Serious: Yes (Other)
  Sender: FDA-Public Use
  Company Number: US-PFIZER INC-2008093593

PATIENT
  Sex: Female
  Weight: 61 kg

DRUGS (4)
  1. LIPITOR [Suspect]
     Indication: BLOOD CHOLESTEROL INCREASED
     Dates: end: 20070101
  2. ATENOLOL [Concomitant]
  3. PRILOSEC [Concomitant]
  4. LISINOPRIL [Concomitant]

REACTIONS (6)
  - CONFUSIONAL STATE [None]
  - LIMB OPERATION [None]
  - NEUROPATHY PERIPHERAL [None]
  - PAIN IN EXTREMITY [None]
  - RASH [None]
  - RAYNAUD'S PHENOMENON [None]
